FAERS Safety Report 15084696 (Version 7)
Quarter: 2018Q4

REPORT INFORMATION
  Report Type: Report from Study
  Country: CN (occurrence: CN)
  Receive Date: 20180628
  Receipt Date: 20181026
  Transmission Date: 20190204
  Serious: Yes (Death, Other)
  Sender: FDA-Public Use
  Company Number: CN-AMGEN-CHNCT2018087204

PATIENT
  Age: 48 Year
  Sex: Male
  Weight: 69 kg

DRUGS (24)
  1. BLINATUMOMAB [Suspect]
     Active Substance: BLINATUMOMAB
     Indication: B PRECURSOR TYPE ACUTE LEUKAEMIA
     Dosage: 28 MUG, QD
     Route: 042
     Dates: start: 20180509, end: 20180608
  2. OMEPRAZOLE MAGNESIUM. [Concomitant]
     Active Substance: OMEPRAZOLE MAGNESIUM
     Dosage: 20 MG, UNK
     Route: 048
     Dates: start: 20180509, end: 20180527
  3. PANTOPRAZOLE [Concomitant]
     Active Substance: PANTOPRAZOLE
     Dosage: 40 MG, UNK
     Route: 048
     Dates: start: 20180509, end: 20180509
  4. HUMAN ALBUMIN [Concomitant]
     Active Substance: ALBUMIN HUMAN
     Dosage: 20 G, UNK
     Route: 042
     Dates: start: 20180510, end: 20180514
  5. INSULIN INJECTION [Concomitant]
     Active Substance: INSULIN NOS
     Dosage: 4 IU- 8 UNK, UNK
     Route: 042
     Dates: start: 20180510, end: 20180515
  6. ESTAZOLAM. [Concomitant]
     Active Substance: ESTAZOLAM
     Dosage: 1-2 MG, UNK
     Route: 048
     Dates: start: 20180511, end: 20180611
  7. LANSOPRAZOLE. [Concomitant]
     Active Substance: LANSOPRAZOLE
     Dosage: 30 MG, UNK
     Route: 042
     Dates: start: 20180510, end: 20180609
  8. VITAMIN B6 [Concomitant]
     Active Substance: PYRIDOXINE HYDROCHLORIDE
     Dosage: 50 MG, UNK
     Route: 042
     Dates: start: 20180510, end: 20180514
  9. CALCIUM GLUCONATE. [Concomitant]
     Active Substance: CALCIUM GLUCONATE
     Dosage: 1 G, UNK
     Route: 042
     Dates: start: 20180527, end: 20180527
  10. CYTARABINE. [Concomitant]
     Active Substance: CYTARABINE
     Dosage: 50 MG, UNK
     Route: 042
     Dates: start: 20180611, end: 20180611
  11. FILGRASTIM [Concomitant]
     Active Substance: FILGRASTIM
     Dosage: 200-300 MUG, UNK
     Route: 058
     Dates: start: 20180510, end: 20180527
  12. LIDOCAINE. [Concomitant]
     Active Substance: LIDOCAINE
     Dosage: 10 MG AND 10 ML, UNK
     Dates: start: 20180508, end: 20180611
  13. COMPOUND LIDOCAINE HYDROCHLORIDE [Concomitant]
     Dosage: 10 ML, UNK
     Route: 037
     Dates: start: 20180424, end: 20180424
  14. POTASSIUM CHLORIDE. [Concomitant]
     Active Substance: POTASSIUM CHLORIDE
     Dosage: 1 G- 10 ML, UNK
     Dates: start: 20180510, end: 20180604
  15. DEXAMETHASONE SODIUM PHOSPHATE. [Concomitant]
     Active Substance: DEXAMETHASONE SODIUM PHOSPHATE
     Dosage: 5-20 MG, UNK
     Dates: start: 20180424, end: 20180509
  16. SODIUM BICARBONATE. [Concomitant]
     Active Substance: SODIUM BICARBONATE
     Dosage: 125 ML AND 1 G, UNK
     Dates: start: 20180509, end: 20180528
  17. POTASSIUM [Concomitant]
     Active Substance: POTASSIUM
     Dosage: 1 G, UNK
     Route: 048
     Dates: start: 20180601, end: 20180611
  18. POLYENE PHOSPHATIDYLCHOLINE [Concomitant]
     Active Substance: PHOSPHOLIPID
     Dosage: 465 MG, UNK
     Route: 042
     Dates: start: 20180510, end: 20180521
  19. ADEMETIONINE 1,4-BUTANEDISULFONATE [Concomitant]
     Dosage: 1000 MG, UNK
     Route: 042
     Dates: start: 20180510, end: 20180515
  20. TORSEMIDE. [Concomitant]
     Active Substance: TORSEMIDE
     Dosage: 20 MG, UNK
     Route: 042
     Dates: start: 20180510, end: 20180514
  21. ACICLOVIR [Concomitant]
     Active Substance: ACYCLOVIR
     Dosage: 400 MG, UNK
     Route: 048
     Dates: start: 20180509, end: 20180611
  22. CALCIUM CARBONATE AND VITAMIN D [Concomitant]
     Active Substance: CALCIUM CARBONATE\VITAMIN D
     Dosage: 600 MG, UNK
     Route: 048
     Dates: start: 20180530, end: 20180611
  23. FLUCONAZOLE. [Concomitant]
     Active Substance: FLUCONAZOLE
     Dosage: 150 MG, UNK
     Route: 048
     Dates: start: 20180509, end: 20180611
  24. DEXAMETHASON [Concomitant]
     Active Substance: DEXAMETHASONE
     Dosage: 5-20 MG, UNK
     Route: 042
     Dates: start: 20180511, end: 20180611

REACTIONS (1)
  - Pneumonitis [Fatal]

NARRATIVE: CASE EVENT DATE: 20180625
